FAERS Safety Report 7908413-8 (Version None)
Quarter: 2011Q4

REPORT INFORMATION
  Report Type: 
  Country: None (occurrence: None)
  Receive Date: 20111111
  Receipt Date: 20111102
  Transmission Date: 20120403
  Serious: Yes (Hospitalization)
  Sender: FDA-Public Use
  Company Number: US-JNJFOC-20111101134

PATIENT
  Sex: Female
  Weight: 144.7 kg

DRUGS (2)
  1. SIMPONI [Suspect]
     Indication: PSORIATIC ARTHROPATHY
     Route: 058
     Dates: start: 20100101, end: 20110701
  2. SIMPONI [Suspect]
     Route: 058
     Dates: start: 20101102

REACTIONS (14)
  - INJURY ASSOCIATED WITH DEVICE [None]
  - INCORRECT STORAGE OF DRUG [None]
  - FATIGUE [None]
  - SWELLING [None]
  - PSORIASIS [None]
  - FIBROMYALGIA [None]
  - THERAPEUTIC RESPONSE UNEXPECTED [None]
  - ASTHMA [None]
  - DRUG DOSE OMISSION [None]
  - PRURITUS [None]
  - DEVICE MALFUNCTION [None]
  - PAIN [None]
  - NERVOUSNESS [None]
  - JOINT SWELLING [None]
